FAERS Safety Report 7665896 (Version 3)
Quarter: 2013Q3

REPORT INFORMATION
  Report Type: Spontaneous
  Country: US (occurrence: US)
  Receive Date: 20101112
  Receipt Date: 20130722
  Transmission Date: 20140515
  Serious: Yes (Hospitalization, Other)
  Sender: FDA-Public Use
  Company Number: US-ROCHE-718612

PATIENT
  Age: 26 Year
  Sex: Male
  Weight: 79.4 kg

DRUGS (1)
  1. ACCUTANE [Suspect]
     Indication: ACNE
     Route: 065
     Dates: start: 1996, end: 2001

REACTIONS (8)
  - Crohn^s disease [Unknown]
  - Rectal abscess [Unknown]
  - Anal fistula [Unknown]
  - Anal fistula [Unknown]
  - Inflammatory bowel disease [Unknown]
  - Gastrointestinal injury [Unknown]
  - Intestinal stenosis [Unknown]
  - Depression [Unknown]
